FAERS Safety Report 7861718-1 (Version None)
Quarter: 2011Q4

REPORT INFORMATION
  Report Type: 
  Country: None (occurrence: None)
  Receive Date: 20111027
  Receipt Date: 20111026
  Transmission Date: 20120403
  Serious: Yes (Disabling)
  Sender: FDA-Public Use
  Company Number: AU-MERCK-1108USA01812

PATIENT
  Age: 59 Year
  Sex: Male

DRUGS (6)
  1. VENLAFAXINE HYDROCHLORIDE [Concomitant]
     Indication: DEPRESSION
     Route: 065
  2. AMITRIPTYLINE HYDROCHLORIDE [Concomitant]
     Indication: DEPRESSION
     Route: 065
  3. TENOFOVIR DISOPROXIL FUMARATE [Concomitant]
     Indication: HIV INFECTION
     Route: 065
     Dates: start: 20070101
  4. CLOPIDOGREL [Concomitant]
     Indication: CEREBROVASCULAR ACCIDENT PROPHYLAXIS
     Route: 065
  5. ISENTRESS [Suspect]
     Indication: HIV INFECTION
     Route: 048
     Dates: start: 20100901, end: 20100914
  6. ATAZANAVIR SULFATE [Concomitant]
     Indication: HIV INFECTION
     Route: 065
     Dates: start: 20070101

REACTIONS (3)
  - RASH [None]
  - CONJUNCTIVITIS [None]
  - INFLAMMATION [None]
